FAERS Safety Report 16396674 (Version 3)
Quarter: 2019Q2

REPORT INFORMATION
  Report Type: Spontaneous
  Country: US (occurrence: US)
  Receive Date: 20190606
  Receipt Date: 20190613
  Transmission Date: 20190711
  Serious: No
  Sender: FDA-Public Use
  Company Number: US-SHIRE-US201918273

PATIENT
  Age: 75 Year
  Sex: Female
  Weight: 155 kg

DRUGS (3)
  1. XIIDRA [Suspect]
     Active Substance: LIFITEGRAST
     Dosage: UNK
     Route: 047
  2. XIIDRA [Suspect]
     Active Substance: LIFITEGRAST
     Indication: DRY EYE
     Dosage: 1 GTT DROPS, 2X/DAY:BID
     Route: 047
     Dates: start: 201904
  3. FLUTICASONE. [Concomitant]
     Active Substance: FLUTICASONE
     Indication: ALLERGIC SINUSITIS

REACTIONS (3)
  - Ocular hyperaemia [Not Recovered/Not Resolved]
  - Eyelid disorder [Unknown]
  - Malaise [Not Recovered/Not Resolved]

NARRATIVE: CASE EVENT DATE: 201905
